FAERS Safety Report 9536198 (Version 1)
Quarter: 2013Q2

REPORT INFORMATION
  Report Type: Spontaneous
  Country: US (occurrence: None)
  Receive Date: 20130418
  Receipt Date: 20130418
  Transmission Date: 20140414
  Serious: Yes (Other)
  Sender: FDA-Public Use
  Company Number: 1303USA001884

PATIENT
  Sex: Female

DRUGS (7)
  1. SINGULAIR [Suspect]
     Indication: HYPERTENSION
     Dosage: 10 MG, 10 MG COCT, ORAL
     Route: 048
  2. DIHYDROCODEINE BITARTRATE) (DIHYDROCODEINE BITARTRATE) [Concomitant]
  3. TRIAMCINOLONE (TRIAMCINOLONE) [Concomitant]
  4. VENTOLIN (ALBUTEROL SULFATE) (ALBUTEROL SULFATE) [Concomitant]
  5. AMLODIPINE (AMLODIPINE) [Concomitant]
  6. SERETIDE (FLUTICASONE PROPIONATE, SALMETEROL XINAFOATE) [Concomitant]
  7. OMEPRAZOLE (OMEPRAZOLE) [Concomitant]

REACTIONS (3)
  - Rhinitis [None]
  - Condition aggravated [None]
  - Asthma [None]
